FAERS Safety Report 6133276-3 (Version None)
Quarter: 2009Q1

REPORT INFORMATION
  Report Type: 
  Country: None (occurrence: None)
  Receive Date: 20090326
  Receipt Date: 20090305
  Transmission Date: 20090719
  Serious: Yes (Hospitalization, Other)
  Sender: FDA-Public Use
  Company Number: AU-NOVOPROD-282954

PATIENT
  Sex: Male
  Weight: 68.45 kg

DRUGS (9)
  1. NOVOLOG [Suspect]
     Indication: INSULIN-REQUIRING TYPE 2 DIABETES MELLITUS
     Dosage: 7 IU, TID
     Route: 058
     Dates: start: 20081203, end: 20081216
  2. NOVOLOG [Suspect]
     Dosage: 21 IU, QD
     Route: 058
     Dates: start: 20090110
  3. LANTUS [Suspect]
     Indication: INSULIN-REQUIRING TYPE 2 DIABETES MELLITUS
     Dosage: 20 U, QD
     Route: 058
     Dates: start: 20081203, end: 20081216
  4. LANTUS [Suspect]
     Dosage: 20 IU, UNK
     Route: 058
     Dates: start: 20081216
  5. WARFARIN SODIUM [Concomitant]
     Dates: start: 20081211
  6. FLUCLOXACILLIN [Concomitant]
     Dosage: 2 MG, UNK
     Dates: start: 20081211
  7. ASPIRIN [Concomitant]
     Dosage: 150 MG, UNK
     Route: 048
     Dates: start: 20081205
  8. ATORVASTATIN [Concomitant]
     Dosage: 40 MG, UNK
     Route: 048
     Dates: start: 20081205
  9. PANTOPRAZOLE SODIUM [Concomitant]
     Dosage: 40 MG, UNK
     Dates: start: 20081211

REACTIONS (7)
  - BLOOD GLUCOSE FLUCTUATION [None]
  - BLOOD GLUCOSE INCREASED [None]
  - DEVICE MALFUNCTION [None]
  - HAEMOTHORAX [None]
  - HYPERGLYCAEMIA [None]
  - INFECTION [None]
  - PLEURAL EFFUSION [None]
